FAERS Safety Report 16363243 (Version 1)
Quarter: 2019Q2

REPORT INFORMATION
  Report Type: Spontaneous
  Country: KR (occurrence: KR)
  Receive Date: 20190528
  Receipt Date: 20190528
  Transmission Date: 20190711
  Serious: Yes (Hospitalization)
  Sender: FDA-Public Use
  Company Number: KR-NALPROPION PHARMACEUTICALS INC.-2018-005804

PATIENT

DRUGS (17)
  1. ARONAMIN C PLUS [Concomitant]
     Indication: SUPPLEMENTATION THERAPY
     Dosage: 1 TAB, QD
     Route: 048
     Dates: start: 20180713, end: 20180811
  2. CONTRAVE [Suspect]
     Active Substance: BUPROPION HYDROCHLORIDE\NALTREXONE HYDROCHLORIDE
     Dosage: 3 TABS/DAY (1 TAB DAYTIME, 2 TAB NIGHT TIME)
     Route: 048
     Dates: start: 20180727, end: 20180802
  3. LUTHIONE [Concomitant]
     Indication: FATIGUE
     Dosage: 1 VIAL ONCE
     Route: 042
     Dates: start: 20180713, end: 20180713
  4. EDRO [Concomitant]
     Indication: RHINITIS
     Dosage: 1 TAB, BID
     Route: 048
     Dates: start: 20180912
  5. CHOLECALCIFEROL [Concomitant]
     Active Substance: CHOLECALCIFEROL
     Dosage: 1 TAB, ONE TIME DOSE
     Route: 048
     Dates: start: 20180813, end: 20180813
  6. CHOLECALCIFEROL [Concomitant]
     Active Substance: CHOLECALCIFEROL
     Indication: VITAMIN SUPPLEMENTATION
     Dosage: 1 TAB, ONE TIME DOSE
     Route: 048
     Dates: start: 20180713, end: 20180713
  7. CONTRAVE [Suspect]
     Active Substance: BUPROPION HYDROCHLORIDE\NALTREXONE HYDROCHLORIDE
     Indication: WEIGHT CONTROL
     Dosage: MORNING DOSE : 0T, EVENING DOSE : 1T
     Route: 048
     Dates: start: 20180713, end: 20180719
  8. OMACOR [Concomitant]
     Active Substance: OMEGA-3-ACID ETHYL ESTERS
     Indication: HYPERTRIGLYCERIDAEMIA
     Dosage: 1 DF, QD
     Route: 048
     Dates: start: 20180713
  9. LUTHIONE [Concomitant]
     Dosage: 1 VIAL ONCE
     Route: 042
     Dates: start: 20180810, end: 20180810
  10. SINGULAIR [Concomitant]
     Active Substance: MONTELUKAST SODIUM
     Indication: RHINITIS
     Dosage: 1 TABLET ONCE
     Route: 048
     Dates: start: 20180912
  11. CONTRAVE [Suspect]
     Active Substance: BUPROPION HYDROCHLORIDE\NALTREXONE HYDROCHLORIDE
     Dosage: MORNING DOSE : 2T, EVENING DOSE : 2T
     Route: 048
     Dates: start: 20180803, end: 20180809
  12. GLUTHIONE [Concomitant]
     Indication: SUPPLEMENTATION THERAPY
     Dosage: 1 TAB, QD
     Route: 048
     Dates: start: 20180812
  13. CONTRAVE [Suspect]
     Active Substance: BUPROPION HYDROCHLORIDE\NALTREXONE HYDROCHLORIDE
     Dosage: MORNING DOSE : 2T, EVENING DOSE : 2T
     Route: 048
     Dates: start: 20180810
  14. LIVIAL [Concomitant]
     Active Substance: TIBOLONE
     Indication: MENOPAUSAL DISORDER
     Dosage: 1 TAB, QD
     Route: 048
     Dates: start: 20180713
  15. ASIMA [Concomitant]
     Active Substance: DOXOFYLLINE
     Indication: RHINITIS
     Dosage: 0.5 TAB, BID
     Route: 048
     Dates: start: 20180912
  16. CHOLECALCIFEROL [Concomitant]
     Active Substance: CHOLECALCIFEROL
     Dosage: 1 TAB, ONE TIME DOSE
     Route: 048
     Dates: start: 20180913, end: 20180913
  17. CONTRAVE [Suspect]
     Active Substance: BUPROPION HYDROCHLORIDE\NALTREXONE HYDROCHLORIDE
     Dosage: MORNING DOSE : 1T, EVENING DOSE : 1T
     Route: 048
     Dates: start: 20180720, end: 20180726

REACTIONS (3)
  - Intervertebral disc protrusion [Recovering/Resolving]
  - Rhinitis [Recovered/Resolved]
  - Glucose tolerance impaired [Recovering/Resolving]

NARRATIVE: CASE EVENT DATE: 20180910
